FAERS Safety Report 6285078-5 (Version None)
Quarter: 2009Q3

REPORT INFORMATION
  Report Type: 
  Country: None (occurrence: None)
  Receive Date: 20090727
  Receipt Date: 20090711
  Transmission Date: 20100115
  Serious: Yes (Hospitalization)
  Sender: FDA-Public Use
  Company Number: JP-MERCK-0907USA02460

PATIENT
  Age: 49 Year
  Sex: Male

DRUGS (6)
  1. ISENTRESS [Suspect]
     Indication: HIV INFECTION
     Route: 048
     Dates: start: 20090113, end: 20090427
  2. ZIAGEN [Concomitant]
     Indication: HIV INFECTION
     Route: 048
     Dates: start: 20010607, end: 20090427
  3. VIRAMUNE [Concomitant]
     Indication: HIV INFECTION
     Route: 048
     Dates: start: 20010130, end: 20090319
  4. DIOVAN [Concomitant]
     Indication: HYPERTENSION
     Route: 048
  5. TRANSAMIN [Concomitant]
     Indication: HAEMOPHILIA
     Route: 048
  6. NATRIX [Concomitant]
     Indication: HYPERTENSION
     Route: 048

REACTIONS (1)
  - PERITONITIS [None]
